FAERS Safety Report 5164912-6 (Version None)
Quarter: 2006Q4

REPORT INFORMATION
  Report Type: 
  Country: None (occurrence: None)
  Receive Date: 20061205
  Receipt Date: 20060303
  Transmission Date: 20070319
  Serious: Yes (Death, Other)
  Sender: FDA-Public Use
  Company Number: CA-ELI_LILLY_AND_COMPANY-CA200603001551

PATIENT
  Age: 49 Year
  Sex: Male
  Weight: 68 kg

DRUGS (5)
  1. STRATTERA [Suspect]
     Indication: ATTENTION DEFICIT/HYPERACTIVITY DISORDER
     Dosage: 36 MG, EACH MORNING
     Route: 047
     Dates: start: 20050318, end: 20050406
  2. STRATTERA [Suspect]
     Dosage: 80 MG, DAILY (1/D)
     Route: 048
     Dates: start: 20050407, end: 20050628
  3. STRATTERA [Suspect]
     Dosage: 105 MG, DAILY (1/D)
     Route: 048
     Dates: start: 20050629
  4. STRATTERA [Suspect]
     Dosage: 18 MG, EACH MORNING
     Route: 048
     Dates: start: 20050304, end: 20050317
  5. ALCOHOL [Concomitant]

REACTIONS (5)
  - CORONARY ARTERY DISEASE [None]
  - CORONARY ARTERY OCCLUSION [None]
  - LOSS OF CONSCIOUSNESS [None]
  - MYOCARDIAL INFARCTION [None]
  - PRESCRIBED OVERDOSE [None]
